FAERS Safety Report 7538395-2 (Version None)
Quarter: 2011Q2

REPORT INFORMATION
  Report Type: 
  Country: None (occurrence: None)
  Receive Date: 20110609
  Receipt Date: 20110518
  Transmission Date: 20111010
  Serious: Yes (Hospitalization, Other)
  Sender: FDA-Public Use
  Company Number: DE-WATSON-2011-07035

PATIENT

DRUGS (4)
  1. PENTASA [Suspect]
     Indication: CROHN'S DISEASE
     Dosage: 100 MG, DAILY
     Route: 048
  2. PREDNISOLONE [Suspect]
     Indication: CROHN'S DISEASE
     Dosage: 70 MG, DAILY
     Route: 048
  3. FOLIC ACID [Concomitant]
     Indication: PROPHYLAXIS OF NEURAL TUBE DEFECT
     Route: 048
  4. AZATHIOPRINE [Suspect]
     Indication: CROHN'S DISEASE
     Dosage: 150 MG, DAILY
     Route: 048

REACTIONS (1)
  - ABORTION SPONTANEOUS [None]
